FAERS Safety Report 4342677-5 (Version None)
Quarter: 2004Q1

REPORT INFORMATION
  Report Type: 
  Country: None (occurrence: None)
  Receive Date: 20040213
  Receipt Date: 20031029
  Transmission Date: 20041129
  Serious: Yes (Other)
  Sender: FDA-Public Use
  Company Number: 350344

PATIENT
  Age: 39 Year
  Sex: Male
  Weight: 73 kg

DRUGS (5)
  1. PEGASYS [Suspect]
     Dosage: 1CC SUBCUTANEOUS
     Route: 058
     Dates: start: 20030606, end: 20031028
  2. RIBAVIRIN [Concomitant]
  3. EFFEXOR [Concomitant]
  4. REMERON [Concomitant]
  5. RITALIN [Concomitant]

REACTIONS (2)
  - RETINAL EXUDATES [None]
  - VISUAL DISTURBANCE [None]
